FAERS Safety Report 8174309-2 (Version None)
Quarter: 2012Q1

REPORT INFORMATION
  Report Type: 
  Country: None (occurrence: None)
  Receive Date: 20120229
  Receipt Date: 20120215
  Transmission Date: 20120608
  Serious: Yes (Congenital Anomaly, Other)
  Sender: FDA-Public Use
  Company Number: US-MERCK-1201USA02584B1

PATIENT
  Age: 0 Day
  Sex: Female
  Weight: 3 kg

DRUGS (4)
  1. ISENTRESS [Suspect]
     Route: 064
     Dates: start: 20111202, end: 20111212
  2. RETROVIR [Suspect]
     Dosage: 2 MG/KG/HR
     Route: 064
     Dates: start: 20111212, end: 20111212
  3. SUSTIVA [Suspect]
     Route: 064
     Dates: start: 20111202, end: 20111212
  4. COMBIVIR [Suspect]
     Route: 064
     Dates: start: 20111202, end: 20111212

REACTIONS (3)
  - CLEFT LIP [None]
  - FOETAL EXPOSURE DURING PREGNANCY [None]
  - CLEFT PALATE [None]
